FAERS Safety Report 8614368-3 (Version None)
Quarter: 2012Q3

REPORT INFORMATION
  Report Type: 
  Country: None (occurrence: None)
  Receive Date: 20120823
  Receipt Date: 20120814
  Transmission Date: 20120928
  Serious: Yes (Other)
  Sender: FDA-Public Use
  Company Number: US-SANOFI-AVENTIS-2012SA058550

PATIENT
  Sex: Female

DRUGS (3)
  1. SOLOSTAR [Suspect]
     Dates: start: 20070101
  2. LANTUS [Suspect]
     Dosage: DOSE:24 UNIT(S)
     Route: 058
     Dates: start: 20070101
  3. HUMALOG [Suspect]
     Route: 065

REACTIONS (3)
  - BLOOD GLUCOSE INCREASED [None]
  - ROTATOR CUFF SYNDROME [None]
  - LIMB INJURY [None]
